FAERS Safety Report 21779230 (Version 1)
Quarter: 2022Q4

REPORT INFORMATION
  Report Type: Spontaneous
  Country: US (occurrence: None)
  Receive Date: 20221226
  Receipt Date: 20221226
  Transmission Date: 20230113
  Serious: No
  Sender: FDA-Public Use
  Company Number: 2022A400533

PATIENT

DRUGS (1)
  1. SYMBICORT [Suspect]
     Active Substance: BUDESONIDE\FORMOTEROL FUMARATE DIHYDRATE
     Dosage: 160 MCG, 120 INHALATIONS, 2 PUFFS 2 TIMES A DAY,
     Route: 055

REACTIONS (2)
  - Product dose omission issue [Unknown]
  - Device malfunction [Unknown]
